FAERS Safety Report 8498950-2 (Version None)
Quarter: 2012Q3

REPORT INFORMATION
  Report Type: 
  Country: None (occurrence: None)
  Receive Date: 20120710
  Receipt Date: 20120702
  Transmission Date: 20120928
  Serious: No
  Sender: FDA-Public Use
  Company Number: US-BIOGENIDEC-2012BI023476

PATIENT
  Sex: Female

DRUGS (1)
  1. TYSABRI [Suspect]
     Indication: MULTIPLE SCLEROSIS
     Route: 042
     Dates: start: 20061115

REACTIONS (11)
  - FEELING ABNORMAL [None]
  - PARAESTHESIA [None]
  - PAIN IN EXTREMITY [None]
  - LOSS OF CONTROL OF LEGS [None]
  - FEAR [None]
  - NEURALGIA [None]
  - STRESS [None]
  - MEMORY IMPAIRMENT [None]
  - CONFUSIONAL STATE [None]
  - COGNITIVE DISORDER [None]
  - VASODILATATION [None]
